FAERS Safety Report 5835486-9 (Version None)
Quarter: 2008Q3

REPORT INFORMATION
  Report Type: 
  Country: None (occurrence: None)
  Receive Date: 20080804
  Receipt Date: 20080724
  Transmission Date: 20090109
  Serious: Yes (Hospitalization)
  Sender: FDA-Public Use
  Company Number: SPV1-2008-01577

PATIENT
  Age: 11 Year
  Sex: Male
  Weight: 30.8 kg

DRUGS (5)
  1. PENTASA [Suspect]
     Dosage: ORAL
     Route: 048
     Dates: start: 20070601
  2. ZOLOFT /01011402/ (SERTRALINE HYDROCHLORIDE) UNKNOWN [Concomitant]
  3. DIFLUCAN (FLUCONAZOLE) UNKNOWN [Concomitant]
  4. PROBIOTICS (BACTERIA NOS) UNKNOWN [Concomitant]
  5. VITAMIN C /00008001/ (ASCORBIC ACID) UNKNOWN [Concomitant]

REACTIONS (1)
  - ENCEPHALITIS VIRAL [None]
